FAERS Safety Report 5020860-3 (Version None)
Quarter: 2006Q2

REPORT INFORMATION
  Report Type: 
  Country: None (occurrence: None)
  Receive Date: 20060602
  Receipt Date: 20060601
  Transmission Date: 20061013
  Serious: Yes (Hospitalization)
  Sender: FDA-Public Use
  Company Number: 007598

PATIENT
  Age: 57 Year
  Sex: Female

DRUGS (1)
  1. NORETHINDRONE ACETATE [Suspect]
     Indication: MENORRHAGIA
     Dosage: 1 TABLET, QD, ORAL
     Route: 048
     Dates: start: 20060528, end: 20060529

REACTIONS (2)
  - ABDOMINAL DISCOMFORT [None]
  - ABDOMINAL PAIN UPPER [None]
